FAERS Safety Report 4474668-8 (Version None)
Quarter: 2004Q4

REPORT INFORMATION
  Report Type: 
  Country: None (occurrence: None)
  Receive Date: 20041012
  Receipt Date: 20040929
  Transmission Date: 20050328
  Serious: Yes (Hospitalization)
  Sender: FDA-Public Use
  Company Number: 238126

PATIENT
  Age: 76 Year
  Sex: Male
  Weight: 45 kg

DRUGS (5)
  1. NOVORAPID CHU FLEXPEN (INSULIN ASPART) SOLUTION FOR INJECTION, 100U/ML [Suspect]
     Indication: INSULIN-REQUIRING TYPE II DIABETES MELLITUS
     Dosage: 14 IU (6+8+0), QD, SUBCUTANEOUS
     Route: 058
     Dates: start: 20040621
  2. NOVORAPID 30 MIX CHU FELX PEN (INSULIN ASPART) SUSPENSION FOR INJECTIO [Suspect]
     Indication: INSULIN-REQUIRING TYPE II DIABETES MELLITUS
     Dosage: 10 IU (0+0+10) QD, SUBCUTANEOUS
     Route: 058
     Dates: start: 20040705, end: 20040720
  3. LANTUS [Concomitant]
  4. HUMULIN N [Concomitant]
  5. HUMULIN R [Concomitant]

REACTIONS (3)
  - DRUG ERUPTION [None]
  - ERYTHEMA MULTIFORME [None]
  - NASOPHARYNGITIS [None]
